FAERS Safety Report 8804843 (Version 2)
Quarter: 2012Q4

REPORT INFORMATION
  Report Type: 
  Country: US (occurrence: US)
  Receive Date: 20120924
  Receipt Date: 20121022
  Transmission Date: 20130627
  Serious: Yes (Other)
  Sender: FDA-Public Use
  Company Number: US-JNJFOC-20100803491

PATIENT
  Sex: Female
  Weight: 89.81 kg

DRUGS (3)
  1. LEVAQUIN [Suspect]
     Indication: SINUSITIS
     Route: 048
  2. NASONEX [Suspect]
     Indication: SINUS CONGESTION
     Route: 045
  3. ADVAIR [Suspect]
     Indication: SINUS CONGESTION
     Route: 055

REACTIONS (4)
  - Rotator cuff syndrome [Recovering/Resolving]
  - Tendon rupture [Recovering/Resolving]
  - Rotator cuff syndrome [Recovering/Resolving]
  - Epicondylitis [Unknown]
